FAERS Safety Report 6588362-0 (Version None)
Quarter: 2010Q1

REPORT INFORMATION
  Report Type: 
  Country: None (occurrence: None)
  Receive Date: 20100218
  Receipt Date: 20100212
  Transmission Date: 20100710
  Serious: Yes (Other)
  Sender: FDA-Public Use
  Company Number: FR-ASTRAZENECA-2009SE19861

PATIENT
  Age: 23588 Day
  Sex: Female

DRUGS (2)
  1. ARIMIDEX [Suspect]
     Indication: BREAST CANCER
     Route: 048
     Dates: start: 20060908
  2. ZYRTEC [Concomitant]

REACTIONS (4)
  - ARTHRALGIA [None]
  - ERYSIPELAS [None]
  - MACULAR DEGENERATION [None]
  - PAIN [None]
